FAERS Safety Report 21163939 (Version 1)
Quarter: 2022Q3

REPORT INFORMATION
  Report Type: Spontaneous
  Country: US (occurrence: US)
  Receive Date: 20220803
  Receipt Date: 20220803
  Transmission Date: 20221027
  Serious: Yes (Other)
  Sender: FDA-Public Use
  Company Number: US-BEH-2022147996

PATIENT
  Sex: Male
  Weight: 77.098 kg

DRUGS (10)
  1. IDELVION [Suspect]
     Active Substance: COAGULATION FACTOR IX RECOMBINANT HUMAN
     Indication: Factor IX deficiency
     Dosage: 282 INTERNATIONAL UNIT, QW
     Route: 042
     Dates: start: 20190625
  2. IDELVION [Suspect]
     Active Substance: COAGULATION FACTOR IX RECOMBINANT HUMAN
     Indication: Factor IX deficiency
     Dosage: 282 INTERNATIONAL UNIT, QW
     Route: 042
     Dates: start: 20190625
  3. IDELVION [Suspect]
     Active Substance: COAGULATION FACTOR IX RECOMBINANT HUMAN
     Indication: Haemorrhage
     Dosage: 282 INTERNATIONAL UNIT, PRN
     Route: 042
     Dates: start: 20190625
  4. IDELVION [Suspect]
     Active Substance: COAGULATION FACTOR IX RECOMBINANT HUMAN
     Indication: Haemorrhage
     Dosage: 282 INTERNATIONAL UNIT, PRN
     Route: 042
     Dates: start: 20190625
  5. IDELVION [Suspect]
     Active Substance: COAGULATION FACTOR IX RECOMBINANT HUMAN
     Dosage: 2019 INTERNATIONAL UNIT, QW
     Route: 042
     Dates: start: 20190625
  6. IDELVION [Suspect]
     Active Substance: COAGULATION FACTOR IX RECOMBINANT HUMAN
     Dosage: 2019 INTERNATIONAL UNIT, QW
     Route: 042
     Dates: start: 20190625
  7. IDELVION [Suspect]
     Active Substance: COAGULATION FACTOR IX RECOMBINANT HUMAN
     Dosage: 2019 INTERNATIONAL UNIT, PRN
     Route: 042
     Dates: start: 20190625
  8. IDELVION [Suspect]
     Active Substance: COAGULATION FACTOR IX RECOMBINANT HUMAN
     Dosage: 2019 INTERNATIONAL UNIT, PRN
     Route: 042
     Dates: start: 20190625
  9. IDELVION [Suspect]
     Active Substance: COAGULATION FACTOR IX RECOMBINANT HUMAN
     Dosage: 2 DOSAGE FORM
     Route: 065
     Dates: start: 20220711
  10. IDELVION [Suspect]
     Active Substance: COAGULATION FACTOR IX RECOMBINANT HUMAN
     Dosage: 2 DOSAGE FORM
     Route: 065
     Dates: start: 20220711

REACTIONS (4)
  - Haemorrhage [Not Recovered/Not Resolved]
  - Therapeutic product effect incomplete [Unknown]
  - Swelling [Not Recovered/Not Resolved]
  - Arthralgia [Unknown]
